FAERS Safety Report 15121569 (Version 1)
Quarter: 2018Q3

REPORT INFORMATION
  Report Type: Spontaneous
  Country: US (occurrence: US)
  Receive Date: 20180613
  Receipt Date: 20180613
  Transmission Date: 20181010
  Serious: Yes (Hospitalization, Disabling)
  Sender: FDA-Public Use
  Company Number: None

PATIENT
  Age: 23 Year
  Sex: Male
  Weight: 88.2 kg

DRUGS (2)
  1. CIPROFLOXACIN. [Suspect]
     Active Substance: CIPROFLOXACIN
     Indication: TYPHOID FEVER
     Dosage: ?          QUANTITY:20 DF DOSAGE FORM;?
     Route: 048
  2. ASPIRIN. [Concomitant]
     Active Substance: ASPIRIN

REACTIONS (20)
  - Muscular weakness [None]
  - Night sweats [None]
  - Dyspnoea [None]
  - Joint stiffness [None]
  - Myalgia [None]
  - Hyperaesthesia [None]
  - Dizziness [None]
  - Vertigo [None]
  - Hepatic pain [None]
  - Pain in extremity [None]
  - Myasthenia gravis [None]
  - Nausea [None]
  - Disturbance in attention [None]
  - Feeling abnormal [None]
  - Sensory loss [None]
  - Diplopia [None]
  - Faeces pale [None]
  - Neuralgia [None]
  - Chest pain [None]
  - Lacunar infarction [None]

NARRATIVE: CASE EVENT DATE: 20171224
